FAERS Safety Report 7251129-4 (Version None)
Quarter: 2011Q1

REPORT INFORMATION
  Report Type: 
  Country: None (occurrence: None)
  Receive Date: 20110128
  Receipt Date: 20110121
  Transmission Date: 20110831
  Serious: Yes (Death, Life-Threatening, Hospitalization)
  Sender: FDA-Public Use
  Company Number: FR-PFIZER INC-2011015167

PATIENT
  Age: 76 Year
  Sex: Female

DRUGS (8)
  1. SOLU-MEDROL [Suspect]
     Indication: RHEUMATOID ARTHRITIS
     Dosage: 500 MG, 1X/DAY
     Dates: start: 20100916
  2. CORDARONE [Concomitant]
     Indication: ARRHYTHMIA
     Dosage: 2 DF, 1X/DAY
     Route: 048
     Dates: start: 20100916
  3. CORDARONE [Concomitant]
     Dosage: 1 DF, 1X/DAY
     Route: 048
     Dates: end: 20101019
  4. REMICADE [Suspect]
     Indication: RHEUMATOID ARTHRITIS
     Dosage: UNK
     Route: 042
     Dates: start: 20100928
  5. CORTANCYL [Suspect]
     Indication: SCLERITIS
  6. ARAVA [Concomitant]
     Indication: RHEUMATOID ARTHRITIS
     Dosage: 20 MG, 1X/DAY
     Route: 048
     Dates: start: 20090101
  7. SOLU-MEDROL [Suspect]
     Indication: SCLERITIS
     Dosage: 50 MG, 1X/DAY
     Dates: start: 20100920
  8. CORTANCYL [Suspect]
     Indication: RHEUMATOID ARTHRITIS
     Dosage: 45 MG, 1X/DAY
     Route: 048

REACTIONS (4)
  - PNEUMOCYSTIS JIROVECI PNEUMONIA [None]
  - MULTI-ORGAN FAILURE [None]
  - CANDIDIASIS [None]
  - ACUTE RESPIRATORY DISTRESS SYNDROME [None]
